FAERS Safety Report 19512495 (Version 1)
Quarter: 2021Q3

REPORT INFORMATION
  Report Type: Spontaneous
  Country: RO (occurrence: RO)
  Receive Date: 20210709
  Receipt Date: 20210709
  Transmission Date: 20211014
  Serious: Yes (Hospitalization, Other)
  Sender: FDA-Public Use
  Company Number: RO-PURDUE-USA-2021-0274097

PATIENT
  Age: 1 Day
  Sex: Male

DRUGS (2)
  1. NON?PMN MORPHINE SULFATE [Suspect]
     Active Substance: MORPHINE SULFATE
     Indication: WITHDRAWAL SYNDROME
     Dosage: 0.1 MG, Q6H
     Route: 065
  2. CANNABIS SATIVA OIL [Suspect]
     Active Substance: CANNABIS SATIVA SUBSP. INDICA TOP
     Indication: PRODUCT USED FOR UNKNOWN INDICATION
     Dosage: UNK
     Route: 064

REACTIONS (2)
  - Intussusception [Recovered/Resolved]
  - Peritonitis [Recovered/Resolved]
